FAERS Safety Report 6132295-0 (Version None)
Quarter: 2009Q1

REPORT INFORMATION
  Report Type: 
  Country: None (occurrence: None)
  Receive Date: 20090325
  Receipt Date: 20090313
  Transmission Date: 20090719
  Serious: Yes (Other)
  Sender: FDA-Public Use
  Company Number: CH-WYE-G02884709

PATIENT
  Age: 43 Year
  Sex: Female

DRUGS (7)
  1. EFFEXOR [Suspect]
     Indication: BIPOLAR II DISORDER
     Dosage: UP TO 525 MG DAILY
     Dates: end: 20081103
  2. EFFEXOR [Suspect]
     Indication: DEPRESSION
     Dates: start: 20081104, end: 20081224
  3. EFFEXOR [Suspect]
     Route: 048
     Dates: start: 20090102, end: 20090115
  4. EFFEXOR [Suspect]
     Route: 048
     Dates: start: 20090116
  5. EFFEXOR [Suspect]
     Dosage: UP TO 525 MG DAILY
     Dates: end: 20060701
  6. HOMEOPATIC PREPARATION [Concomitant]
  7. LAMOTRIGINE [Concomitant]
     Indication: MOOD SWINGS
     Route: 048
     Dates: start: 20050524

REACTIONS (4)
  - ALANINE AMINOTRANSFERASE INCREASED [None]
  - DRUG INEFFECTIVE [None]
  - DRUG LEVEL CHANGED [None]
  - GAMMA-GLUTAMYLTRANSFERASE INCREASED [None]
